FAERS Safety Report 6635069-7 (Version None)
Quarter: 2010Q1

REPORT INFORMATION
  Report Type: 
  Country: None (occurrence: None)
  Receive Date: 20100315
  Receipt Date: 20100301
  Transmission Date: 20100710
  Serious: Yes (Other)
  Sender: FDA-Public Use
  Company Number: PHEH2010US02574

PATIENT
  Sex: Female
  Weight: 150 kg

DRUGS (3)
  1. RECLAST [Suspect]
     Indication: OSTEOPOROSIS
     Dosage: 5 MG, ONCE
     Route: 042
     Dates: start: 20100204
  2. PROZAC [Concomitant]
     Indication: DEPRESSION
     Dosage: 20 MG/DAY
     Route: 048
  3. AVALIDE [Concomitant]
     Indication: HYPERTENSION
     Dosage: 30/2.5 DAILY
     Route: 048

REACTIONS (10)
  - ARTHRALGIA [None]
  - EYE PAIN [None]
  - INSOMNIA [None]
  - OCULAR HYPERAEMIA [None]
  - OSTEOARTHRITIS [None]
  - PAIN [None]
  - RHEUMATOID ARTHRITIS [None]
  - SPINAL OSTEOARTHRITIS [None]
  - VISION BLURRED [None]
  - WHITE BLOOD CELL COUNT INCREASED [None]
